FAERS Safety Report 11012315 (Version 1)
Quarter: 2015Q2

REPORT INFORMATION
  Report Type: Spontaneous
  Country: US (occurrence: None)
  Receive Date: 20150410
  Receipt Date: 20150410
  Transmission Date: 20150821
  Serious: Yes (Other)
  Sender: FDA-Public Use
  Company Number: None

PATIENT
  Age: 69 Year
  Sex: Male

DRUGS (1)
  1. KALETRA [Suspect]
     Active Substance: LOPINAVIR\RITONAVIR
     Indication: HIV INFECTION
     Dosage: ORAL?200-50?ORAL?BID?
     Route: 048
     Dates: start: 20110622

REACTIONS (2)
  - Panic attack [None]
  - Depression [None]

NARRATIVE: CASE EVENT DATE: 20150408
